FAERS Safety Report 18246063 (Version 1)
Quarter: 2020Q3

REPORT INFORMATION
  Report Type: Report from Study
  Country: US (occurrence: US)
  Receive Date: 20200909
  Receipt Date: 20200909
  Transmission Date: 20201104
  Serious: Yes (Other)
  Sender: FDA-Public Use
  Company Number: US-ELI_LILLY_AND_COMPANY-US202009001671

PATIENT

DRUGS (2)
  1. OLANZAPINE. [Suspect]
     Active Substance: OLANZAPINE
     Indication: SCHIZOPHRENIA
     Dosage: UNK, DAILY
     Route: 065
  2. SAMIDORPHAN. [Suspect]
     Active Substance: SAMIDORPHAN
     Indication: SCHIZOPHRENIA
     Dosage: UNK, DAILY
     Route: 065

REACTIONS (1)
  - Schizophrenia [Unknown]
